FAERS Safety Report 19027902 (Version 2)
Quarter: 2021Q2

REPORT INFORMATION
  Report Type: Spontaneous
  Country: IT (occurrence: IT)
  Receive Date: 20210319
  Receipt Date: 20210401
  Transmission Date: 20210717
  Serious: Yes (Life-Threatening, Other)
  Sender: FDA-Public Use
  Company Number: IT-HETERO-HET2021IT00632

PATIENT

DRUGS (6)
  1. QUETIAPINE FUMARATE. [Suspect]
     Active Substance: QUETIAPINE FUMARATE
     Indication: DRUG ABUSE
     Dosage: 150 MG
     Route: 048
  2. ESCITALOPRAM [Suspect]
     Active Substance: ESCITALOPRAM OXALATE
     Indication: DRUG ABUSE
     Dosage: 1 DOSAGE FORM
     Route: 048
  3. QUETIAPINA                         /01270901/ [Suspect]
     Active Substance: QUETIAPINE
     Indication: DRUG ABUSE
     Dosage: 28 DOSAGE FORM
     Route: 048
  4. DICLOFENAC SODICO                  /00372301/ [Suspect]
     Active Substance: DICLOFENAC
     Indication: DRUG ABUSE
     Dosage: 10 DOSAGE FORM
     Route: 048
  5. PARACETAMOLO [Suspect]
     Active Substance: ACETAMINOPHEN
     Indication: DRUG ABUSE
     Dosage: 20 DOSAGE FORM
     Route: 048
  6. ZOLPIDEM TARTRATO SANDOZ [Suspect]
     Active Substance: ZOLPIDEM TARTRATE
     Indication: DRUG ABUSE
     Dosage: 28 DOSAGE FORM
     Route: 048

REACTIONS (4)
  - Sinus tachycardia [Unknown]
  - Lactic acidosis [Unknown]
  - Loss of consciousness [Unknown]
  - Drug abuse [Unknown]

NARRATIVE: CASE EVENT DATE: 20210115
